FAERS Safety Report 5878428-2 (Version None)
Quarter: 2008Q3

REPORT INFORMATION
  Report Type: 
  Country: None (occurrence: None)
  Receive Date: 20080911
  Receipt Date: 20080311
  Transmission Date: 20090109
  Serious: Yes (Hospitalization)
  Sender: FDA-Public Use
  Company Number: US-GENENTECH-257490

PATIENT
  Sex: Female

DRUGS (10)
  1. RANIBIZUMAB [Suspect]
     Indication: MACULAR DEGENERATION
     Dosage: UNK, UNK
     Dates: start: 20051010
  2. RANIBIZUMAB [Suspect]
     Indication: RETINAL CYST
     Dates: start: 20070212
  3. AMBIEN [Concomitant]
     Indication: SLEEP DISORDER
     Dosage: UNK, UNK
     Dates: start: 20020101
  4. ARTIFICIAL TEARS [Concomitant]
     Indication: DRY EYE
     Dates: start: 19800101
  5. CIPRO [Concomitant]
     Indication: SKIN ULCER
     Dates: start: 20061231, end: 20070109
  6. HYDROCHLOROTHIAZIDE [Concomitant]
     Indication: HYPERTENSION
     Dosage: UNK, UNK
     Dates: start: 19750101
  7. MICRO-K [Concomitant]
     Indication: HYPERTENSION
     Dosage: UNK, UNK
     Dates: start: 19750101
  8. MINOCYCLINE HCL [Concomitant]
     Indication: SKIN ULCER
     Dates: start: 20070131, end: 20070209
  9. PREMPRO [Concomitant]
     Indication: MENOPAUSE
     Dosage: UNK, UNK
     Dates: start: 19900101
  10. SYNTHROID [Concomitant]
     Indication: HYPOTHYROIDISM
     Dosage: UNK, UNK
     Dates: start: 19750101

REACTIONS (1)
  - CEREBROVASCULAR ACCIDENT [None]
